FAERS Safety Report 6785084-8 (Version None)
Quarter: 2010Q2

REPORT INFORMATION
  Report Type: 
  Country: None (occurrence: None)
  Receive Date: 20100618
  Receipt Date: 20100607
  Transmission Date: 20101027
  Serious: Yes (Other)
  Sender: FDA-Public Use
  Company Number: 1000014551

PATIENT
  Age: 53 Year
  Sex: Female

DRUGS (1)
  1. ESCITALOPRAM (ESCITALOPRAM OXALATE) (TABLETS) [Suspect]
     Indication: DEPRESSION
     Dosage: 10 MG (10 MG, 1 IN 1 D), ORAL
     Route: 048
     Dates: start: 20090101, end: 20090101

REACTIONS (3)
  - ANXIETY [None]
  - INSOMNIA [None]
  - SENSE OF OPPRESSION [None]
